FAERS Safety Report 19328806 (Version 1)
Quarter: 2021Q2

REPORT INFORMATION
  Report Type: Spontaneous
  Country: UA (occurrence: UA)
  Receive Date: 20210528
  Receipt Date: 20210528
  Transmission Date: 20210717
  Serious: Yes (Death)
  Sender: FDA-Public Use
  Company Number: UA-ALLERGAN-2120506US

PATIENT
  Sex: Male

DRUGS (7)
  1. LEVOFLOXACIN. [Concomitant]
     Active Substance: LEVOFLOXACIN
     Indication: COVID-19 PNEUMONIA
     Dosage: UNK
  2. CEFTAZIDIME;AVIBACTAM ? BP [Suspect]
     Active Substance: AVIBACTAM SODIUM\CEFTAZIDIME
     Indication: COVID-19 PNEUMONIA
     Dosage: 1 DF, 3X/DAY
     Route: 041
  3. VORICONAZOL [Concomitant]
     Active Substance: VORICONAZOLE
     Indication: COVID-19 PNEUMONIA
     Dosage: UNK
     Route: 048
  4. AZTREONAM. [Concomitant]
     Active Substance: AZTREONAM
     Indication: COVID-19 PNEUMONIA
     Dosage: 8 G, DAILY
     Route: 041
  5. LINEZOLID. [Concomitant]
     Active Substance: LINEZOLID
     Indication: COVID-19 PNEUMONIA
     Dosage: UNK
     Route: 048
  6. TYGECYCLINE [Concomitant]
     Active Substance: TIGECYCLINE
     Indication: COVID-19 PNEUMONIA
     Dosage: UNK
  7. MEROPENEM. [Concomitant]
     Active Substance: MEROPENEM
     Indication: COVID-19 PNEUMONIA
     Dosage: UNK

REACTIONS (3)
  - Oliguria [Fatal]
  - Acute kidney injury [Fatal]
  - Off label use [Unknown]
